FAERS Safety Report 6696773-8 (Version None)
Quarter: 2010Q2

REPORT INFORMATION
  Report Type: 
  Country: None (occurrence: None)
  Receive Date: 20100421
  Receipt Date: 20100312
  Transmission Date: 20101027
  Serious: No
  Sender: FDA-Public Use
  Company Number: US-000075

PATIENT
  Sex: Female

DRUGS (3)
  1. KUVAN [Suspect]
     Indication: PHENYLKETONURIA
     Dosage: ORAL
     Route: 048
     Dates: start: 20091028, end: 20100106
  2. KUVAN [Suspect]
     Indication: PHENYLKETONURIA
     Dosage: ORAL
     Route: 048
     Dates: start: 20100106
  3. NUTRIENTS WITHOUT PHENYLALANINE [Concomitant]

REACTIONS (6)
  - ANGER [None]
  - BEHAVIOURAL AND PSYCHIATRIC SYMPTOMS OF DEMENTIA [None]
  - HEADACHE [None]
  - OPPOSITIONAL DEFIANT DISORDER [None]
  - RHINORRHOEA [None]
  - SOCIAL AVOIDANT BEHAVIOUR [None]
